FAERS Safety Report 20980712 (Version 2)
Quarter: 2022Q2

REPORT INFORMATION
  Report Type: Spontaneous
  Country: US (occurrence: US)
  Receive Date: 20220620
  Receipt Date: 20220629
  Transmission Date: 20220721
  Serious: No
  Sender: FDA-Public Use
  Company Number: US-AIMMUNE THERAPEUTICS, INC.-2022AIMT00474

PATIENT

DRUGS (5)
  1. PALFORZIA [Suspect]
     Active Substance: PEANUT
     Indication: Food allergy
     Dosage: 40 MG, 1X/DAY
     Route: 048
     Dates: start: 20220607, end: 20220611
  2. PALFORZIA [Suspect]
     Active Substance: PEANUT
     Dosage: 40 MG, ONCE, LAST DOSE PRIOR TO THE EVENT
     Route: 048
     Dates: start: 20220611, end: 20220611
  3. PALFORZIA [Suspect]
     Active Substance: PEANUT
     Dosage: 20 MG, ONCE, DOSE DECREASED
     Route: 048
     Dates: start: 20220614, end: 20220614
  4. PALFORZIA [Suspect]
     Active Substance: PEANUT
     Dosage: 30 MG, ONCE, DOSE INCREASED
     Route: 048
     Dates: start: 20220615, end: 20220615
  5. PALFORZIA [Suspect]
     Active Substance: PEANUT
     Dosage: 40 MG, 1X/DAY, DOSE INCREASED
     Route: 048
     Dates: start: 20220616

REACTIONS (1)
  - Tooth loss [Recovered/Resolved]

NARRATIVE: CASE EVENT DATE: 20220612
